FAERS Safety Report 11894301 (Version 1)
Quarter: 2016Q1

REPORT INFORMATION
  Report Type: Other
  Country: GB (occurrence: GB)
  Receive Date: 20160107
  Receipt Date: 20160107
  Transmission Date: 20160526
  Serious: Yes (Hospitalization)
  Sender: FDA-Public Use
  Company Number: GB-CIPLA LTD.-2015GB10067

PATIENT

DRUGS (4)
  1. RISPERIDONE. [Suspect]
     Active Substance: RISPERIDONE
     Indication: PRODUCT USED FOR UNKNOWN INDICATION
     Dosage: DOSAGE FORM: UNSPECIFIED
     Route: 048
  2. XEPLION [Suspect]
     Active Substance: PALIPERIDONE PALMITATE
     Indication: PRODUCT USED FOR UNKNOWN INDICATION
     Dosage: UNK
     Route: 065
  3. RISPERIDONE. [Suspect]
     Active Substance: RISPERIDONE
     Indication: PRODUCT USED FOR UNKNOWN INDICATION
     Dosage: UNK AT 2 WEEKS (RISPERDAL CONSTA)
     Route: 065
  4. XEPLION [Suspect]
     Active Substance: PALIPERIDONE PALMITATE
     Dosage: UNK
     Route: 065
     Dates: start: 201111

REACTIONS (4)
  - Psychotic behaviour [Unknown]
  - Condition aggravated [Unknown]
  - Treatment noncompliance [Unknown]
  - Drug intolerance [Unknown]
